FAERS Safety Report 9721713 (Version 1)
Quarter: 2013Q4

REPORT INFORMATION
  Report Type: Spontaneous
  Country: US (occurrence: US)
  Receive Date: 20131201
  Receipt Date: 20131201
  Transmission Date: 20140711
  Serious: No
  Sender: FDA-Public Use
  Company Number: US-ABBVIE-13P-163-1153557-00

PATIENT
  Age: 68 Year
  Sex: Male

DRUGS (3)
  1. ANDROGEL 1.62% [Suspect]
     Indication: BLOOD TESTOSTERONE DECREASED
     Route: 061
     Dates: end: 201306
  2. ANDROGEL 1.62% [Suspect]
     Route: 061
     Dates: start: 201306, end: 20130925
  3. ANDROGEL 1.62% [Suspect]
     Route: 061
     Dates: start: 20131001

REACTIONS (2)
  - Blood testosterone increased [Recovered/Resolved]
  - Blood testosterone decreased [Unknown]
